FAERS Safety Report 14257450 (Version 1)
Quarter: 2017Q4

REPORT INFORMATION
  Report Type: Report from Study
  Country: None (occurrence: None)
  Receive Date: 20171207
  Receipt Date: 20171207
  Transmission Date: 20180321
  Serious: Yes (Death, Other)
  Sender: FDA-Public Use
  Company Number: VISTAPHARM, INC.-VER201711-001210

PATIENT
  Age: 45 Year
  Sex: Female

DRUGS (5)
  1. ETOPOSIDE. [Suspect]
     Active Substance: ETOPOSIDE
     Indication: ANGIOCENTRIC LYMPHOMA STAGE IV
  2. MESNA. [Suspect]
     Active Substance: MESNA
     Indication: CYSTITIS HAEMORRHAGIC
  3. METHOTREXATE. [Suspect]
     Active Substance: METHOTREXATE
  4. PREDNISOLONE. [Suspect]
     Active Substance: PREDNISOLONE
     Indication: ANGIOCENTRIC LYMPHOMA STAGE IV
     Route: 048
  5. IFOSFAMIDE. [Suspect]
     Active Substance: IFOSFAMIDE
     Indication: ANGIOCENTRIC LYMPHOMA STAGE IV

REACTIONS (2)
  - Sepsis [Fatal]
  - Pneumonia [Fatal]
